FAERS Safety Report 7153423-4 (Version None)
Quarter: 2010Q4

REPORT INFORMATION
  Report Type: 
  Country: None (occurrence: None)
  Receive Date: 20101213
  Receipt Date: 20101204
  Transmission Date: 20110411
  Serious: Yes (Other)
  Sender: FDA-Public Use
  Company Number: A0898726A

PATIENT
  Age: 41 Year
  Sex: Male
  Weight: 130 kg

DRUGS (9)
  1. SERETIDE [Suspect]
     Route: 055
  2. AVAMYS [Suspect]
     Dosage: 55MCG TWICE PER DAY
     Route: 045
  3. CYCLOBENZAPRINE [Suspect]
     Dosage: 20MG PER DAY
     Route: 048
  4. PREDNISONE [Suspect]
     Dosage: 20MG PER DAY
     Route: 048
  5. FENOFIBRATE [Suspect]
     Dosage: 200MG UNKNOWN
     Route: 048
  6. SIMVASTATIN [Suspect]
     Route: 048
  7. GARCINIA CAMBOGIA [Concomitant]
  8. CIPROFLOXACIN [Concomitant]
  9. FENPROPOREX [Concomitant]
     Route: 048

REACTIONS (4)
  - GUILLAIN-BARRE SYNDROME [None]
  - MUSCULAR WEAKNESS [None]
  - PARAESTHESIA [None]
  - RESPIRATORY FAILURE [None]
